FAERS Safety Report 11227836 (Version 2)
Quarter: 2015Q3

REPORT INFORMATION
  Report Type: Spontaneous
  Country: IT (occurrence: IT)
  Receive Date: 20150630
  Receipt Date: 20150709
  Transmission Date: 20151125
  Serious: Yes (Other)
  Sender: FDA-Public Use
  Company Number: IT-AUROBINDO-AUR-APL-2015-05481

PATIENT
  Age: 75 Year
  Sex: Female

DRUGS (9)
  1. ATORVASTATIN [Suspect]
     Active Substance: ATORVASTATIN
     Indication: PRODUCT USED FOR UNKNOWN INDICATION
     Dosage: 20 MG, DAILY
     Route: 065
  2. AMILORIDE + HIDROCLOROTIAZIDA [Suspect]
     Active Substance: AMILORIDE HYDROCHLORIDE\HYDROCHLOROTHIAZIDE
     Indication: PRODUCT USED FOR UNKNOWN INDICATION
     Dosage: UNK
     Route: 065
  3. LERCANIDIPINE [Suspect]
     Active Substance: LERCANIDIPINE
     Indication: PRODUCT USED FOR UNKNOWN INDICATION
     Dosage: 10 MG, DAILY
     Route: 065
  4. ASPIRIN. [Suspect]
     Active Substance: ASPIRIN
     Indication: PRODUCT USED FOR UNKNOWN INDICATION
     Dosage: 300 UNK, DAILY
     Route: 065
  5. NITROGLYCERIN. [Suspect]
     Active Substance: NITROGLYCERIN
     Indication: PRODUCT USED FOR UNKNOWN INDICATION
     Dosage: UNK
     Route: 062
  6. PIROXICAM. [Suspect]
     Active Substance: PIROXICAM
     Indication: PRODUCT USED FOR UNKNOWN INDICATION
     Route: 065
  7. BENAZEPRIL [Suspect]
     Active Substance: BENAZEPRIL HYDROCHLORIDE
     Indication: PRODUCT USED FOR UNKNOWN INDICATION
     Dosage: 10 MG, DAILY
     Route: 065
  8. BETAHISTINE 8 MG [Suspect]
     Active Substance: BETAHISTINE
     Indication: PRODUCT USED FOR UNKNOWN INDICATION
     Dosage: 8 MG, DAILY
     Route: 065
  9. ALPRAZOLAM. [Suspect]
     Active Substance: ALPRAZOLAM
     Indication: PRODUCT USED FOR UNKNOWN INDICATION
     Route: 065

REACTIONS (23)
  - Dysstasia [Unknown]
  - Electrocardiogram QRS complex prolonged [Recovered/Resolved]
  - Metabolic acidosis [Unknown]
  - Cardiac disorder [Unknown]
  - Movement disorder [Unknown]
  - Areflexia [Unknown]
  - Dysarthria [Unknown]
  - Abasia [Unknown]
  - Electrocardiogram ST segment depression [Recovered/Resolved]
  - Atrial fibrillation [Unknown]
  - Myocardial infarction [Unknown]
  - Device malfunction [Unknown]
  - Transient ischaemic attack [Unknown]
  - Dry skin [Unknown]
  - Electrocardiogram T wave inversion [Recovered/Resolved]
  - Pallor [Unknown]
  - Hyperkalaemia [Recovered/Resolved]
  - Muscular weakness [Recovered/Resolved]
  - Tachycardia [Unknown]
  - Quadriplegia [Unknown]
  - Hypotonia [Unknown]
  - Drop attacks [Unknown]
  - Anion gap increased [Unknown]
